FAERS Safety Report 8572900-2 (Version None)
Quarter: 2012Q2

REPORT INFORMATION
  Report Type: 
  Country: None (occurrence: None)
  Receive Date: 20120423
  Receipt Date: 20070710
  Transmission Date: 20120825
  Serious: Yes (Life-Threatening, Hospitalization)
  Sender: FDA-Public Use
  Company Number: PHEH2007US16345

PATIENT
  Age: 65 Year
  Sex: Female
  Weight: 75 kg

DRUGS (2)
  1. EXJADE [Suspect]
     Indication: IRON METABOLISM DISORDER
     Dosage: 1500 MG, QD, ORAL
     Route: 048
     Dates: start: 20070501, end: 20070601
  2. EXJADE [Suspect]
     Indication: HAEMOCHROMATOSIS
     Dosage: 1500 MG, QD, ORAL
     Route: 048
     Dates: start: 20070501, end: 20070601

REACTIONS (2)
  - HEPATIC FAILURE [None]
  - RENAL FAILURE [None]
